FAERS Safety Report 8421870-6 (Version None)
Quarter: 2012Q2

REPORT INFORMATION
  Report Type: 
  Country: None (occurrence: None)
  Receive Date: 20120608
  Receipt Date: 20120605
  Transmission Date: 20120825
  Serious: Yes (Hospitalization)
  Sender: FDA-Public Use
  Company Number: FR-PFIZER INC-2012134362

PATIENT
  Age: 90 Year
  Sex: Female

DRUGS (5)
  1. AMLODIPINE BESYLATE [Suspect]
     Dosage: 5 MG, 1X/DAY
     Route: 048
  2. ASPIRIN [Suspect]
     Dosage: 160 MG, 1X/DAY
     Route: 048
  3. VALSARTAN  AND HYDROCHLOROTHIAZIDE [Suspect]
     Dosage: 25MG+160MG
     Route: 048
  4. SERMION [Suspect]
     Dosage: 10 MG, DAILY
     Route: 048
     Dates: end: 20120511
  5. LANSOPRAZOLE [Suspect]
     Dosage: 15 MG, 1X/DAY
     Route: 048

REACTIONS (3)
  - FALL [None]
  - GENERAL PHYSICAL HEALTH DETERIORATION [None]
  - PULMONARY FIBROSIS [None]
